FAERS Safety Report 5919023-6 (Version None)
Quarter: 2008Q4

REPORT INFORMATION
  Report Type: 
  Country: None (occurrence: None)
  Receive Date: 20081014
  Receipt Date: 20081014
  Transmission Date: 20090506
  Serious: Yes (Other)
  Sender: FDA-Public Use
  Company Number: None

PATIENT
  Age: 9 Year
  Sex: Female
  Weight: 27.2158 kg

DRUGS (2)
  1. FLOVENT HFA [Suspect]
     Indication: NASOPHARYNGITIS
     Dosage: 2 PUFFS TWICE DAILY PO, 1-2 WEEKS
     Route: 048
  2. FLOVENT HFA [Suspect]
     Indication: RESPIRATORY DISORDER
     Dosage: 2 PUFFS TWICE DAILY PO, 1-2 WEEKS
     Route: 048

REACTIONS (12)
  - ABNORMAL BEHAVIOUR [None]
  - ANGER [None]
  - ANXIETY [None]
  - CRYING [None]
  - FATIGUE [None]
  - FEAR [None]
  - INSOMNIA [None]
  - MOOD ALTERED [None]
  - NASOPHARYNGITIS [None]
  - OBSESSIVE-COMPULSIVE DISORDER [None]
  - PARANOIA [None]
  - WHEEZING [None]
